FAERS Safety Report 21622868 (Version 2)
Quarter: 2022Q4

REPORT INFORMATION
  Report Type: Spontaneous
  Country: JP (occurrence: JP)
  Receive Date: 20221121
  Receipt Date: 20221130
  Transmission Date: 20230113
  Serious: Yes (Death, Hospitalization)
  Sender: FDA-Public Use
  Company Number: JP-ELI_LILLY_AND_COMPANY-JP202211009582AA

PATIENT
  Age: 81 Year
  Sex: Female

DRUGS (1)
  1. INSULIN GLARGINE [Suspect]
     Active Substance: INSULIN GLARGINE
     Indication: Pancreatogenous diabetes
     Dosage: 2 INTERNATIONAL UNIT, DAILY
     Route: 058

REACTIONS (3)
  - Metastases to liver [Fatal]
  - Hypoglycaemia [Unknown]
  - Diarrhoea [Unknown]
